FAERS Safety Report 20551989 (Version 1)
Quarter: 2022Q1

REPORT INFORMATION
  Report Type: Spontaneous
  Country: US (occurrence: US)
  Receive Date: 20220304
  Receipt Date: 20220304
  Transmission Date: 20220424
  Serious: No
  Sender: FDA-Public Use
  Company Number: US-BIOGEN-2021BI01070044

PATIENT
  Age: 55 Year
  Sex: Male

DRUGS (1)
  1. TYSABRI [Suspect]
     Active Substance: NATALIZUMAB
     Indication: Multiple sclerosis
     Route: 065
     Dates: start: 20210519

REACTIONS (4)
  - Product dose omission issue [Unknown]
  - Cognitive disorder [Unknown]
  - Lacrimation increased [Unknown]
  - Illness [Unknown]

NARRATIVE: CASE EVENT DATE: 20211204
